FAERS Safety Report 4966452-3 (Version None)
Quarter: 2006Q2

REPORT INFORMATION
  Report Type: 
  Country: None (occurrence: None)
  Receive Date: 20060407
  Receipt Date: 20051116
  Transmission Date: 20061013
  Serious: Yes (Other)
  Sender: FDA-Public Use
  Company Number: SEWYE145616NOV05

PATIENT
  Sex: Male

DRUGS (3)
  1. ENBREL [Suspect]
     Indication: PSORIASIS
     Route: 058
     Dates: start: 20041207
  2. ENBREL [Suspect]
     Dates: start: 20050308
  3. CLOBETASOL PROPIONATE [Concomitant]
     Dosage: ADMINISTERED TWICE WEEKLY

REACTIONS (1)
  - POLYNEUROPATHY [None]
